FAERS Safety Report 20797303 (Version 1)
Quarter: 2022Q2

REPORT INFORMATION
  Report Type: Spontaneous
  Country: KR (occurrence: None)
  Receive Date: 20220506
  Receipt Date: 20220506
  Transmission Date: 20220720
  Serious: Yes (Other)
  Sender: FDA-Public Use
  Company Number: 2022A171814

PATIENT
  Sex: Female

DRUGS (2)
  1. GEFITINIB [Suspect]
     Active Substance: GEFITINIB
     Route: 048
     Dates: start: 201812, end: 201910
  2. GEFITINIB [Suspect]
     Active Substance: GEFITINIB
     Route: 048
     Dates: end: 202201

REACTIONS (3)
  - Disease recurrence [Unknown]
  - Lymph node fibrosis [Unknown]
  - Lymph node calcification [Unknown]

NARRATIVE: CASE EVENT DATE: 20191023
